FAERS Safety Report 9574822 (Version 2)
Quarter: 2013Q4

REPORT INFORMATION
  Report Type: Report from Study
  Country: DE (occurrence: DE)
  Receive Date: 20131001
  Receipt Date: 20131001
  Transmission Date: 20140711
  Serious: Yes (Hospitalization)
  Sender: FDA-Public Use
  Company Number: DE-TEVA-425633GER

PATIENT
  Sex: Male

DRUGS (12)
  1. DOXORUBICIN [Suspect]
     Indication: B-CELL LYMPHOMA
     Dosage: DAY 1
     Route: 042
     Dates: start: 20130715
  2. PREDNISONE [Suspect]
     Indication: B-CELL LYMPHOMA
     Dosage: DAY 1 AND 5
     Route: 065
  3. VINCRISTINE [Suspect]
     Indication: B-CELL LYMPHOMA
     Dosage: DAY 1
     Route: 042
     Dates: start: 20130715
  4. CYCLOPHOSPHAMIDE [Suspect]
     Indication: B-CELL LYMPHOMA
     Dosage: DAY 1
     Route: 042
     Dates: start: 20130715
  5. RITUXIMAB [Suspect]
     Indication: B-CELL LYMPHOMA
     Dosage: DAY 7, DAY 1 (701 MG)
     Route: 042
     Dates: start: 20130608
  6. PEGFILGRASTIM [Suspect]
     Indication: B-CELL LYMPHOMA
     Dosage: DAY 4
     Route: 058
     Dates: start: 20130719
  7. METHOTREXAT LEDERLE [Suspect]
     Indication: B-CELL LYMPHOMA
     Dosage: 1.95 G/M2 FOR 1 DAY (DAY 1)
     Route: 042
     Dates: start: 20130710, end: 20130710
  8. LEUCOVORIN [Suspect]
     Indication: B-CELL LYMPHOMA
     Route: 065
     Dates: start: 20130710, end: 20130710
  9. PANTOPRAZOLE [Concomitant]
     Route: 048
  10. BISOPROLOL [Concomitant]
     Indication: HYPERTENSION
     Route: 048
  11. ACETYLSALICYLIC ACID [Concomitant]
     Indication: HYPERTENSION
     Route: 048
  12. KALIUM CHLORID [Concomitant]
     Indication: HYPOKALAEMIA
     Dosage: 600 MILLIGRAM DAILY;
     Route: 048
     Dates: start: 20130727

REACTIONS (2)
  - Pneumonia [Unknown]
  - Renal failure acute [Recovered/Resolved]
